FAERS Safety Report 7319284-5 (Version None)
Quarter: 2011Q1

REPORT INFORMATION
  Report Type: 
  Country: None (occurrence: None)
  Receive Date: 20110228
  Receipt Date: 20100113
  Transmission Date: 20110831
  Serious: No
  Sender: FDA-Public Use
  Company Number: A0839211A

PATIENT
  Age: 52 Year
  Sex: Female

DRUGS (2)
  1. DOSTINEX [Concomitant]
  2. LAMICTAL [Suspect]
     Indication: BIPOLAR DISORDER
     Dosage: 150MG PER DAY
     Route: 048

REACTIONS (7)
  - MUSCULAR WEAKNESS [None]
  - RASH [None]
  - DIZZINESS [None]
  - PRURITUS [None]
  - FOOD CRAVING [None]
  - BURNING SENSATION [None]
  - SENSORY DISTURBANCE [None]
